FAERS Safety Report 25621035 (Version 4)
Quarter: 2025Q4

REPORT INFORMATION
  Report Type: Report from Study
  Country: US (occurrence: US)
  Receive Date: 20250730
  Receipt Date: 20251214
  Transmission Date: 20260119
  Serious: Yes (Other)
  Sender: ABBVIE
  Company Number: US-ABBVIE-6131876

PATIENT
  Age: 51 Year
  Sex: Male

DRUGS (3)
  1. RINVOQ [Suspect]
     Active Substance: UPADACITINIB
     Indication: Psoriatic arthropathy
     Dosage: LAST ADMIN DATE 2025
     Route: 048
     Dates: start: 20250127
  2. RINVOQ [Suspect]
     Active Substance: UPADACITINIB
     Indication: Psoriatic arthropathy
     Dosage: STOP DATE: 2025
     Route: 048
     Dates: start: 20250201
  3. RINVOQ [Suspect]
     Active Substance: UPADACITINIB
     Indication: Psoriatic arthropathy
     Route: 048
     Dates: start: 202504

REACTIONS (14)
  - Back pain [Not Recovered/Not Resolved]
  - Eye swelling [Unknown]
  - Musculoskeletal stiffness [Recovering/Resolving]
  - Dry eye [Unknown]
  - Eye discharge [Unknown]
  - Lacrimation increased [Unknown]
  - Drug ineffective [Unknown]
  - Fatigue [Not Recovered/Not Resolved]
  - Neck pain [Not Recovered/Not Resolved]
  - Pruritus [Unknown]
  - Lethargy [Unknown]
  - Oropharyngeal discomfort [Unknown]
  - Limb discomfort [Unknown]
  - Musculoskeletal discomfort [Unknown]

NARRATIVE: CASE EVENT DATE: 20250101
